FAERS Safety Report 8250468-8 (Version None)
Quarter: 2012Q2

REPORT INFORMATION
  Report Type: 
  Country: None (occurrence: None)
  Receive Date: 20120402
  Receipt Date: 20120402
  Transmission Date: 20120825
  Serious: Yes (Hospitalization)
  Sender: FDA-Public Use
  Company Number: None

PATIENT
  Age: 39 Year
  Sex: Female
  Weight: 59.874 kg

DRUGS (2)
  1. BOTOX [Suspect]
     Indication: SKIN COSMETIC PROCEDURE
     Dosage: 36 UNITS
     Dates: start: 20120308, end: 20120308
  2. PRESERVATIVE FREE [Concomitant]
     Indication: SKIN COSMETIC PROCEDURE
     Dates: start: 20120308, end: 20120308

REACTIONS (6)
  - ANXIETY [None]
  - DYSPHAGIA [None]
  - FEELING ABNORMAL [None]
  - PRESYNCOPE [None]
  - PANIC ATTACK [None]
  - DRY MOUTH [None]
